FAERS Safety Report 8057100 (Version 2)
Quarter: 2012Q4

REPORT INFORMATION
  Report Type: 
  Country: US (occurrence: US)
  Receive Date: 20110727
  Receipt Date: 20120829
  Transmission Date: 20130627
  Serious: Yes (Hospitalization)
  Sender: FDA-Public Use
  Company Number: US-GLAXOSMITHKLINE-A0923673A

PATIENT
  Age: 76 Year
  Sex: Female

DRUGS (1)
  1. AVANDIA [Suspect]
     Indication: DIABETES MELLITUS
     Route: 048
     Dates: start: 20011103, end: 20041028

REACTIONS (10)
  - Cardiac flutter [Not Recovered/Not Resolved]
  - Dyspnoea [Unknown]
  - Heart rate increased [Unknown]
  - Dizziness [Unknown]
  - Asthenia [Unknown]
  - Dizziness [Unknown]
  - Lung disorder [Unknown]
  - Sleep disorder [Unknown]
  - Cardiac failure congestive [Unknown]
  - Oedema peripheral [Unknown]
